FAERS Safety Report 20356171 (Version 1)
Quarter: 2022Q1

REPORT INFORMATION
  Report Type: Report from Study
  Country: CA (occurrence: CA)
  Receive Date: 20220120
  Receipt Date: 20220120
  Transmission Date: 20220423
  Serious: Yes (Other)
  Sender: FDA-Public Use
  Company Number: CA-JNJFOC-20220126906

PATIENT
  Age: 44 Year
  Sex: Male

DRUGS (1)
  1. REMICADE [Suspect]
     Active Substance: INFLIXIMAB
     Indication: Crohn^s disease
     Route: 042

REACTIONS (6)
  - Pneumonia [Recovered/Resolved]
  - Fungal infection [Unknown]
  - Bacterial infection [Unknown]
  - Oral candidiasis [Not Recovered/Not Resolved]
  - Skin fissures [Unknown]
  - Skin infection [Unknown]

NARRATIVE: CASE EVENT DATE: 20211101
